FAERS Safety Report 13682731 (Version 1)
Quarter: 2017Q2

REPORT INFORMATION
  Report Type: Spontaneous
  Country: US (occurrence: US)
  Receive Date: 20170623
  Receipt Date: 20170623
  Transmission Date: 20170830
  Serious: No
  Sender: FDA-Public Use
  Company Number: US-MALLINCKRODT-T201605297

PATIENT
  Age: 47 Year
  Sex: Female
  Weight: 102 kg

DRUGS (26)
  1. OMEPRAZOLE. [Concomitant]
     Active Substance: OMEPRAZOLE
     Dosage: 40MG DAILY
  2. CALCIUM 500+D [Concomitant]
     Active Substance: CALCIUM\VITAMIN D
     Dosage: 500MG DAILY
  3. AZATHIOPRINE. [Concomitant]
     Active Substance: AZATHIOPRINE
     Dosage: 50MG X2 AM
  4. H.P. ACTHAR [Suspect]
     Active Substance: CORTICOTROPIN
     Indication: SARCOIDOSIS
     Dosage: 80U/ML, 3X WEEKLY (MON, WED, SAT)
     Route: 065
     Dates: start: 20160714
  5. ALENDRONATE [Concomitant]
     Active Substance: ALENDRONATE SODIUM
     Dosage: 70MG WEEKLY
  6. AMMONIUM LACTATE. [Concomitant]
     Active Substance: AMMONIUM LACTATE
  7. NOVOLOG [Concomitant]
     Active Substance: INSULIN ASPART
     Dosage: 18 UNITS
  8. LANTUS [Concomitant]
     Active Substance: INSULIN GLARGINE
     Dosage: 60 UNITS AT BEDTIME
  9. SIMVASTATIN. [Concomitant]
     Active Substance: SIMVASTATIN
     Dosage: 20MG AT BEDTIME
  10. FLUOXETINE [Concomitant]
     Active Substance: FLUOXETINE HYDROCHLORIDE
  11. AZATHIOPRINE. [Concomitant]
     Active Substance: AZATHIOPRINE
     Dosage: 50MG PM
  12. MELOXICAM. [Concomitant]
     Active Substance: MELOXICAM
     Dosage: 7.5MG X 2 TABLETS PER DAY
     Route: 048
  13. PROAIR HFA [Concomitant]
     Active Substance: ALBUTEROL SULFATE
     Dosage: 2 PUFFS 4 TIMES DAILY
  14. NASONEX [Concomitant]
     Active Substance: MOMETASONE FUROATE
     Dosage: 2 SPRAYS IN EACH NOSTRIL ONCE DAILY
  15. VITAMIN D [Concomitant]
     Active Substance: CHOLECALCIFEROL
     Dosage: 50,000IU WEEKLY
  16. H.P. ACTHAR [Suspect]
     Active Substance: CORTICOTROPIN
     Dosage: 80U/ML, 2X WEEKLY
     Route: 065
     Dates: start: 201607, end: 20160714
  17. ALBUTEROL. [Concomitant]
     Active Substance: ALBUTEROL
     Dosage: 150MG EVERY 6 HOURS AS NEEDED
  18. TOPAMAX [Concomitant]
     Active Substance: TOPIRAMATE
     Dosage: 250MG AM
  19. VITAMIN C [Concomitant]
     Active Substance: ASCORBIC ACID
     Dosage: 2000MG DAILY
  20. TOPAMAX [Concomitant]
     Active Substance: TOPIRAMATE
     Dosage: 200MG PM
  21. COENZYME Q10 [Concomitant]
     Active Substance: UBIDECARENONE
     Dosage: 100MG DAILY
  22. CYCLOBENZAPRINE. [Concomitant]
     Active Substance: CYCLOBENZAPRINE
     Dosage: 10MG THREE TIMES DAILY
  23. NAPROXEN. [Concomitant]
     Active Substance: NAPROXEN
     Dosage: 500MG TWICE DAILY
  24. CLONAZEPAM. [Concomitant]
     Active Substance: CLONAZEPAM
     Dosage: 0.5 MG TWICE A DAY
  25. ADVAIR HFA [Concomitant]
     Active Substance: FLUTICASONE PROPIONATE\SALMETEROL XINAFOATE
     Dosage: TWICE A DAY
  26. COLESTIPOL [Concomitant]
     Active Substance: COLESTIPOL
     Dosage: 1MG X2 AT BEDTIME

REACTIONS (1)
  - Furuncle [Not Recovered/Not Resolved]

NARRATIVE: CASE EVENT DATE: 201607
